FAERS Safety Report 9912758 (Version 2)
Quarter: 2014Q1

REPORT INFORMATION
  Report Type: Spontaneous
  Country: US (occurrence: US)
  Receive Date: 20140220
  Receipt Date: 20140225
  Transmission Date: 20141002
  Serious: No
  Sender: FDA-Public Use
  Company Number: US-PFIZER INC-2014047382

PATIENT
  Sex: Male

DRUGS (1)
  1. METHIMAZOLE [Suspect]
     Dosage: UNK

REACTIONS (5)
  - Drug intolerance [Unknown]
  - Drug ineffective [Unknown]
  - Weight decreased [Unknown]
  - Tremor [Unknown]
  - Malaise [Unknown]
